FAERS Safety Report 5178954-8 (Version None)
Quarter: 2006Q4

REPORT INFORMATION
  Report Type: 
  Country: None (occurrence: None)
  Receive Date: 20061219
  Receipt Date: 20061208
  Transmission Date: 20070319
  Serious: Yes (Hospitalization)
  Sender: FDA-Public Use
  Company Number: CA-JNJFOC-20061202936

PATIENT
  Sex: Male
  Weight: 50 kg

DRUGS (11)
  1. REMICADE [Suspect]
     Indication: RHEUMATOID ARTHRITIS
     Route: 042
  2. ATIVAN [Concomitant]
  3. SENNA [Concomitant]
     Indication: CONSTIPATION
  4. DOCUSATE [Concomitant]
  5. CELEBREX [Concomitant]
  6. CLONAZEPAM [Concomitant]
  7. OXYCONTIN [Concomitant]
  8. FLOMAX [Concomitant]
  9. VENTOLIN [Concomitant]
     Dosage: 4 TIMES DAILY AS NEEDED
  10. KETODERM [Concomitant]
     Dosage: LOCAL APPLICATION TWICE DAILY AS NEEDED
  11. PREDNISONE TAB [Concomitant]

REACTIONS (5)
  - CRYING [None]
  - DEPRESSION [None]
  - INSOMNIA [None]
  - RHEUMATOID ARTHRITIS [None]
  - TREMOR [None]
